FAERS Safety Report 10704028 (Version 1)
Quarter: 2015Q1

REPORT INFORMATION
  Report Type: Spontaneous
  Country: US (occurrence: US)
  Receive Date: 20150112
  Receipt Date: 20150112
  Transmission Date: 20150721
  Serious: Yes (Other)
  Sender: FDA-Public Use
  Company Number: US-SA-2015SA002465

PATIENT
  Age: 45 Year
  Sex: Male
  Weight: 79.51 kg

DRUGS (9)
  1. DIPHENHYDRAMINE [Concomitant]
     Active Substance: DIPHENHYDRAMINE
  2. ENALAPRIL [Concomitant]
     Active Substance: ENALAPRIL
  3. HYDROCODONE [Concomitant]
     Active Substance: HYDROCODONE
  4. ACETAMINOPHEN. [Concomitant]
     Active Substance: ACETAMINOPHEN
  5. NORMAL SALINE [Concomitant]
     Active Substance: SODIUM CHLORIDE
  6. EPIPEN [Concomitant]
     Active Substance: EPINEPHRINE
  7. ASPIRIN. [Concomitant]
     Active Substance: ASPIRIN
  8. FABRAZYME [Suspect]
     Active Substance: AGALSIDASE BETA
     Indication: LIPIDOSIS
     Route: 042
     Dates: start: 20110216
  9. FABRAZYME [Suspect]
     Active Substance: AGALSIDASE BETA
     Indication: LIPIDOSIS
     Route: 042
     Dates: start: 20110216

REACTIONS (2)
  - Influenza [Unknown]
  - Cholecystectomy [Unknown]
